FAERS Safety Report 13673291 (Version 2)
Quarter: 2017Q2

REPORT INFORMATION
  Report Type: Report from Study
  Country: None (occurrence: CA)
  Receive Date: 20170621
  Receipt Date: 20170628
  Transmission Date: 20170830
  Serious: Yes (Hospitalization)
  Sender: FDA-Public Use
  Company Number: CA-ABBVIE-17K-028-2012977-00

PATIENT
  Age: 63 Year
  Sex: Female
  Weight: 88.08 kg

DRUGS (7)
  1. DUODOPA [Suspect]
     Active Substance: CARBIDOPA\LEVODOPA
     Dosage: DOSE: 20MG/ML, MORNING BOLUS: 0 ML, CD RATE: 3.9 ML/H (DAY)/ 2.0ML/HR (NIGHT) ED: 0.9 ML
     Route: 050
     Dates: start: 20170614
  2. AMLODIPINE [Concomitant]
     Active Substance: AMLODIPINE BESYLATE
     Indication: PRODUCT USED FOR UNKNOWN INDICATION
     Route: 048
  3. AMLODIPINE [Concomitant]
     Active Substance: AMLODIPINE BESYLATE
     Indication: BLOOD PRESSURE MEASUREMENT
     Route: 048
  4. DUODOPA [Suspect]
     Active Substance: CARBIDOPA\LEVODOPA
     Indication: PARKINSON^S DISEASE
     Dosage: DOSE: 20MG/ML?MORNING BOLUS: 0 ML ?CONTINUOUS DOSE RATE: 3.9 ML/H?EXTRA DOSE: 0.9 ML
     Route: 050
     Dates: start: 20160422, end: 20170614
  5. PANTOPRAZOLE [Concomitant]
     Active Substance: PANTOPRAZOLE
     Indication: PRODUCT USED FOR UNKNOWN INDICATION
     Route: 048
  6. MIRTAZAPINE. [Concomitant]
     Active Substance: MIRTAZAPINE
     Indication: PRODUCT USED FOR UNKNOWN INDICATION
     Route: 048
  7. LEVOCARB [Concomitant]
     Active Substance: CARBIDOPA\LEVODOPA
     Indication: PRODUCT USED FOR UNKNOWN INDICATION
     Dosage: DAILY DOSE: 1000/250 MG??UNIT DOSE: 200/50 MG??FORM STRENGTH: 100/25 MG
     Route: 048

REACTIONS (3)
  - Escherichia urinary tract infection [Not Recovered/Not Resolved]
  - Delirium [Recovering/Resolving]
  - Platelet count increased [Unknown]

NARRATIVE: CASE EVENT DATE: 20170424
